FAERS Safety Report 7998757 (Version 8)
Quarter: 2013Q4

REPORT INFORMATION
  Report Type: Spontaneous
  Country: GR (occurrence: GR)
  Receive Date: 20110621
  Receipt Date: 20131017
  Transmission Date: 20140711
  Serious: Yes (Life-Threatening, Hospitalization, Disabling, Other)
  Sender: FDA-Public Use
  Company Number: GR-BIOGENIDEC-2011BI021549

PATIENT
  Age: 47 Year
  Sex: Female
  Weight: 68 kg

DRUGS (3)
  1. TYSABRI [Suspect]
     Indication: MULTIPLE SCLEROSIS
     Route: 042
     Dates: start: 200808, end: 20110525
  2. ESCITALOPRAM [Concomitant]
     Indication: DEPRESSION
     Dates: start: 20110315, end: 20110602
  3. MIRTAZAPINE [Concomitant]
     Indication: DEPRESSION
     Dates: start: 20110608, end: 20110709

REACTIONS (4)
  - Progressive multifocal leukoencephalopathy [Not Recovered/Not Resolved]
  - Depression [Unknown]
  - Psychotic disorder [Recovered/Resolved]
  - Immune reconstitution inflammatory syndrome [Unknown]
